FAERS Safety Report 10170460 (Version 4)
Quarter: 2014Q2

REPORT INFORMATION
  Report Type: Report from Study
  Country: US (occurrence: US)
  Receive Date: 20140513
  Receipt Date: 20140611
  Transmission Date: 20141212
  Serious: Yes (Life-Threatening, Hospitalization)
  Sender: FDA-Public Use
  Company Number: US-ACTELION-A-NJ2014-98901

PATIENT
  Age: 56 Year
  Sex: Female

DRUGS (2)
  1. VENTAVIS [Suspect]
     Indication: PULMONARY ARTERIAL HYPERTENSION
     Dosage: 6-9XD
     Route: 055
     Dates: start: 20130115
  2. SILDENAFIL [Concomitant]

REACTIONS (1)
  - Cerebrovascular accident [Unknown]
